FAERS Safety Report 6125929-8 (Version None)
Quarter: 2009Q1

REPORT INFORMATION
  Report Type: 
  Country: None (occurrence: None)
  Receive Date: 20090304
  Receipt Date: 20080603
  Transmission Date: 20090719
  Serious: Yes (Hospitalization)
  Sender: FDA-Public Use
  Company Number: 273626

PATIENT
  Sex: 0

DRUGS (1)
  1. NOVOSEVEN [Suspect]
     Indication: HAEMORRHAGE
     Dosage: THREE DOSES, INTRAVENOUS
     Route: 042
     Dates: start: 20080301, end: 20080301

REACTIONS (1)
  - DRUG INEFFECTIVE [None]
